FAERS Safety Report 19547018 (Version 1)
Quarter: 2021Q3

REPORT INFORMATION
  Report Type: Spontaneous
  Country: US (occurrence: US)
  Receive Date: 20210715
  Receipt Date: 20210715
  Transmission Date: 20211014
  Serious: No
  Sender: FDA-Public Use
  Company Number: US-ORGANON-O2107USA000413

PATIENT
  Sex: Female

DRUGS (5)
  1. ASMANEX [Suspect]
     Active Substance: MOMETASONE FUROATE
     Dosage: FOURTH
  2. ASMANEX [Suspect]
     Active Substance: MOMETASONE FUROATE
     Dosage: SECOND
  3. ASMANEX [Suspect]
     Active Substance: MOMETASONE FUROATE
     Dosage: 1 PUFF TWICE DAILY
     Dates: start: 20210627
  4. ASMANEX [Suspect]
     Active Substance: MOMETASONE FUROATE
     Dosage: FIRST
  5. ASMANEX [Suspect]
     Active Substance: MOMETASONE FUROATE
     Dosage: THIRD

REACTIONS (7)
  - Device malfunction [Unknown]
  - Device malfunction [Unknown]
  - Circumstance or information capable of leading to medication error [Unknown]
  - Product dose omission issue [Unknown]
  - Poor quality device used [Unknown]
  - Poor quality device used [Unknown]
  - No adverse event [Unknown]

NARRATIVE: CASE EVENT DATE: 20210701
